FAERS Safety Report 7085403-1 (Version None)
Quarter: 2010Q4

REPORT INFORMATION
  Report Type: 
  Country: None (occurrence: None)
  Receive Date: 20101105
  Receipt Date: 20101102
  Transmission Date: 20110411
  Serious: Yes (Other)
  Sender: FDA-Public Use
  Company Number: US-PFIZER INC-2010139660

PATIENT
  Sex: Female

DRUGS (4)
  1. CHANTIX [Suspect]
     Indication: SMOKING CESSATION THERAPY
     Dosage: 0.5 MG, 1X/DAY
     Route: 048
     Dates: start: 20101001, end: 20101001
  2. CHANTIX [Suspect]
     Dosage: 0.5 MG, 2X/DAY
     Dates: start: 20101001, end: 20101102
  3. PERCOCET [Concomitant]
     Indication: SPINAL DISORDER
     Dosage: UNK
  4. ACETYLSALICYLIC ACID [Concomitant]
     Indication: SPINAL DISORDER
     Dosage: UNK

REACTIONS (10)
  - ABNORMAL DREAMS [None]
  - CONFUSIONAL STATE [None]
  - CONSTIPATION [None]
  - DIPLOPIA [None]
  - DISTURBANCE IN ATTENTION [None]
  - INSOMNIA [None]
  - MENTAL IMPAIRMENT [None]
  - NAUSEA [None]
  - PARANOIA [None]
  - VISUAL IMPAIRMENT [None]
